FAERS Safety Report 14665769 (Version 1)
Quarter: 2018Q1

REPORT INFORMATION
  Report Type: Spontaneous
  Country: IT (occurrence: IT)
  Receive Date: 20180321
  Receipt Date: 20180321
  Transmission Date: 20180509
  Serious: Yes (Hospitalization)
  Sender: FDA-Public Use
  Company Number: IT-BAYER-2017-229878

PATIENT
  Age: 77 Year
  Sex: Male

DRUGS (12)
  1. CIPROXIN [Suspect]
     Active Substance: CIPROFLOXACIN
     Dosage: 1 G, UNK
     Route: 048
     Dates: start: 20170506
  2. IGROTON [Concomitant]
     Active Substance: CHLORTHALIDONE
     Dosage: UNK
  3. TOTALIP [Concomitant]
     Active Substance: ATORVASTATIN
  4. RISEDRONATE SODIUM. [Concomitant]
     Active Substance: RISEDRONATE SODIUM
     Dosage: UNK
  5. MEDROL [Concomitant]
     Active Substance: METHYLPREDNISOLONE
     Dosage: 16 MG, UNK
  6. TINSET [Concomitant]
     Active Substance: OXATOMIDE
     Dosage: 30 MG, UNK
  7. TRIATEC [Concomitant]
     Active Substance: RAMIPRIL
     Dosage: UNK
  8. TRIATEC [Concomitant]
     Active Substance: RAMIPRIL
  9. IGROTON [Concomitant]
     Active Substance: CHLORTHALIDONE
  10. RANITIDINE. [Concomitant]
     Active Substance: RANITIDINE
     Dosage: 300 MG, UNK
  11. TOTALIP [Concomitant]
     Active Substance: ATORVASTATIN
     Dosage: UNK
  12. RISEDRONATE SODIUM. [Concomitant]
     Active Substance: RISEDRONATE SODIUM

REACTIONS (1)
  - Henoch-Schonlein purpura [Not Recovered/Not Resolved]

NARRATIVE: CASE EVENT DATE: 20170507
